FAERS Safety Report 25817194 (Version 1)
Quarter: 2025Q3

REPORT INFORMATION
  Report Type: Report from Study
  Country: ZA (occurrence: ZA)
  Receive Date: 20250918
  Receipt Date: 20250918
  Transmission Date: 20251020
  Serious: Yes (Death)
  Sender: ROCHE
  Company Number: ZA-ROCHE-10000194675

PATIENT
  Age: 73 Year
  Sex: Female

DRUGS (2)
  1. VABYSMO [Suspect]
     Active Substance: FARICIMAB-SVOA
     Indication: Macular degeneration
     Dosage: 0.5 ML
     Route: 050
     Dates: start: 20250122
  2. VABYSMO [Suspect]
     Active Substance: FARICIMAB-SVOA
     Dosage: 0.5 ML
     Route: 050
     Dates: start: 20250122

REACTIONS (2)
  - Off label use [Unknown]
  - Myocardial infarction [Fatal]
